FAERS Safety Report 16717266 (Version 1)
Quarter: 2019Q3

REPORT INFORMATION
  Report Type: Spontaneous
  Country: US (occurrence: US)
  Receive Date: 20190702
  Receipt Date: 20190702
  Transmission Date: 20191005
  Serious: Yes (Hospitalization)
  Sender: FDA-Public Use
  Company Number: None

PATIENT
  Age: 55 Year
  Sex: Female

DRUGS (19)
  1. TRESIBA FLEX [Concomitant]
  2. BD PEN NEEDL MIS [Concomitant]
  3. AMITRIPTYLIN [Concomitant]
     Active Substance: AMITRIPTYLINE
  4. COENZYME Q10 [Concomitant]
     Active Substance: UBIDECARENONE
  5. OMEGA-3 ACID [Concomitant]
  6. FASTCLIX MISC LANCETS [Concomitant]
  7. METFORMIN [Concomitant]
     Active Substance: METFORMIN HYDROCHLORIDE
  8. ALFALFA [Concomitant]
     Active Substance: ALFALFA
  9. POT CHLORIDE [Concomitant]
     Active Substance: POTASSIUM CHLORIDE
  10. ACCU-CHEK [Concomitant]
  11. IBUPROFEN. [Concomitant]
     Active Substance: IBUPROFEN
  12. VITAMIN D3 [Concomitant]
     Active Substance: CHOLECALCIFEROL
  13. CHLORTHALID [Concomitant]
     Active Substance: CHLORTHALIDONE
  14. LOSARTAN POT [Concomitant]
     Active Substance: LOSARTAN POTASSIUM
  15. MAGNESIUM [Concomitant]
     Active Substance: MAGNESIUM
  16. MELOXICAM. [Concomitant]
     Active Substance: MELOXICAM
  17. ATORVASTATIN [Concomitant]
     Active Substance: ATORVASTATIN
  18. COSENTYX [Suspect]
     Active Substance: SECUKINUMAB
     Indication: ANKYLOSING SPONDYLITIS
     Dosage: ?          OTHER FREQUENCY:EVERY 28 DAYS;?
     Route: 058
     Dates: start: 20190430
  19. CHROMIUM PIC [Concomitant]

REACTIONS (2)
  - Therapy cessation [None]
  - Knee operation [None]
